FAERS Safety Report 14544032 (Version 4)
Quarter: 2018Q2

REPORT INFORMATION
  Report Type: Spontaneous
  Country: US (occurrence: US)
  Receive Date: 20180216
  Receipt Date: 20180416
  Transmission Date: 20180711
  Serious: Yes (Other)
  Sender: FDA-Public Use
  Company Number: US-IRONWOOD PHARMACEUTICALS, INC.-IRWD2018000280

PATIENT
  Age: 83 Year
  Sex: Female
  Weight: 60.32 kg

DRUGS (21)
  1. ASPIRIN. [Concomitant]
     Active Substance: ASPIRIN
     Indication: PRODUCT USED FOR UNKNOWN INDICATION
     Dosage: UNK
     Dates: start: 20110926
  2. TICAGRELOR. [Suspect]
     Active Substance: TICAGRELOR
     Indication: PERCUTANEOUS CORONARY INTERVENTION
  3. FAMOTIDINE. [Concomitant]
     Active Substance: FAMOTIDINE
     Indication: PRODUCT USED FOR UNKNOWN INDICATION
     Dosage: UNK
     Dates: start: 201102
  4. PRAVASTATIN SODIUM. [Concomitant]
     Active Substance: PRAVASTATIN SODIUM
     Indication: PRODUCT USED FOR UNKNOWN INDICATION
     Dosage: UNK
  5. PEPCID COMPLETE [Concomitant]
     Active Substance: CALCIUM CARBONATE\FAMOTIDINE\MAGNESIUM HYDROXIDE
     Indication: PRODUCT USED FOR UNKNOWN INDICATION
  6. OMEPRAZOLE. [Suspect]
     Active Substance: OMEPRAZOLE
     Indication: PRODUCT USED FOR UNKNOWN INDICATION
     Dosage: UNK
     Route: 048
  7. ATENOLOL. [Suspect]
     Active Substance: ATENOLOL
     Indication: CARDIAC FIBRILLATION
     Dosage: 50 MG, QD
     Route: 048
     Dates: start: 201212
  8. CLOBETASOL PROPIONATE. [Concomitant]
     Active Substance: CLOBETASOL PROPIONATE
     Indication: PRODUCT USED FOR UNKNOWN INDICATION
     Dosage: UNK
  9. MONTELUKAST SODIUM. [Concomitant]
     Active Substance: MONTELUKAST SODIUM
     Indication: PRODUCT USED FOR UNKNOWN INDICATION
  10. TICAGRELOR. [Suspect]
     Active Substance: TICAGRELOR
     Indication: ARTERIOSCLEROSIS
     Dosage: 180 MG, QD
     Route: 048
     Dates: start: 20161110
  11. SINGULAIR [Concomitant]
     Active Substance: MONTELUKAST SODIUM
     Indication: PRODUCT USED FOR UNKNOWN INDICATION
     Dosage: UNK
     Dates: start: 201607
  12. MAGNESIUM [Concomitant]
     Active Substance: MAGNESIUM
     Indication: PRODUCT USED FOR UNKNOWN INDICATION
     Dosage: UNK
     Dates: start: 201611
  13. LISINOPRIL. [Suspect]
     Active Substance: LISINOPRIL
     Indication: HYPERTENSION
     Dosage: 40 MG, QD
     Route: 048
     Dates: start: 201404
  14. AMLODIPINE BESYLATE. [Concomitant]
     Active Substance: AMLODIPINE BESYLATE
     Indication: PRODUCT USED FOR UNKNOWN INDICATION
     Dosage: UNK
     Dates: start: 20140819
  15. TICAGRELOR. [Suspect]
     Active Substance: TICAGRELOR
     Indication: CORONARY ARTERY DISEASE
  16. CYANOCOBALAMIN. [Concomitant]
     Active Substance: CYANOCOBALAMIN
     Indication: PRODUCT USED FOR UNKNOWN INDICATION
     Dosage: UNK
     Dates: start: 2016
  17. ZOLPIDEM TARTRATE. [Concomitant]
     Active Substance: ZOLPIDEM TARTRATE
     Indication: PRODUCT USED FOR UNKNOWN INDICATION
  18. FLUTICASONE PROPIONATE. [Concomitant]
     Active Substance: FLUTICASONE PROPIONATE
     Indication: PRODUCT USED FOR UNKNOWN INDICATION
  19. ZURAMPIC [Suspect]
     Active Substance: LESINURAD
     Indication: HYPERURICAEMIA
     Dosage: UNK
     Route: 048
  20. OCUVITE [Concomitant]
     Active Substance: VITAMINS
     Indication: PRODUCT USED FOR UNKNOWN INDICATION
  21. CEPHALEXIN. [Concomitant]
     Active Substance: CEPHALEXIN
     Indication: PRODUCT USED FOR UNKNOWN INDICATION

REACTIONS (65)
  - Subarachnoid haemorrhage [Unknown]
  - Hypertension [Unknown]
  - Skin burning sensation [Unknown]
  - Epistaxis [Unknown]
  - Iron deficiency anaemia [Unknown]
  - Onychomycosis [Unknown]
  - Vitamin D deficiency [Unknown]
  - Alopecia [Unknown]
  - Deafness [Unknown]
  - Neck pain [Unknown]
  - Carotid bruit [Unknown]
  - Atrial fibrillation [Unknown]
  - Coronary artery disease [Unknown]
  - Otitis externa [Unknown]
  - Carpal tunnel syndrome [Unknown]
  - Peripheral swelling [Unknown]
  - Macular degeneration [Unknown]
  - Osteopenia [Unknown]
  - Palpitations [Unknown]
  - Pelvic pain [Unknown]
  - Varicose vein [Unknown]
  - Vitamin B12 deficiency [Unknown]
  - Bundle branch block right [Unknown]
  - Electrocardiogram abnormal [Unknown]
  - Angina pectoris [Unknown]
  - Urinary incontinence [Unknown]
  - Dyspnoea [Unknown]
  - Rhinitis allergic [Unknown]
  - Trigger finger [Unknown]
  - Headache [Unknown]
  - Blister [Unknown]
  - Pruritus [Unknown]
  - Acute sinusitis [Unknown]
  - Anxiety [Unknown]
  - Cerumen impaction [Unknown]
  - Neuropathy peripheral [Unknown]
  - Gastrooesophageal reflux disease [Unknown]
  - Insomnia [Unknown]
  - Depression [Unknown]
  - Syncope [Unknown]
  - Injury [Unknown]
  - Angina unstable [Unknown]
  - Transient ischaemic attack [Unknown]
  - Seborrhoeic dermatitis [Unknown]
  - Hyperlipidaemia [Unknown]
  - Nocturia [Unknown]
  - Sinus bradycardia [Unknown]
  - Herpes zoster [Unknown]
  - Cellulitis [Unknown]
  - Ataxia [Unknown]
  - Blood urine present [Unknown]
  - Musculoskeletal chest pain [Unknown]
  - Fall [Unknown]
  - Pain in extremity [Unknown]
  - Arthralgia [Unknown]
  - Alanine aminotransferase increased [Unknown]
  - Circumstance or information capable of leading to medication error [Unknown]
  - Arteriosclerosis [Unknown]
  - Abdominal pain [Unknown]
  - Cystitis [Unknown]
  - Night sweats [Unknown]
  - Pyrexia [Unknown]
  - Gastritis [Unknown]
  - Paronychia [Unknown]
  - Peripheral venous disease [Unknown]

NARRATIVE: CASE EVENT DATE: 201208
